FAERS Safety Report 23801032 (Version 1)
Quarter: 2024Q2

REPORT INFORMATION
  Report Type: Report from Study
  Country: US (occurrence: None)
  Receive Date: 20240430
  Receipt Date: 20240430
  Transmission Date: 20240716
  Serious: Yes (Hospitalization)
  Sender: FDA-Public Use
  Company Number: 2024A096644

PATIENT
  Sex: Female

DRUGS (1)
  1. CALQUENCE [Suspect]
     Active Substance: ACALABRUTINIB
     Indication: Lymphocytic leukaemia
     Route: 048
     Dates: start: 20221011

REACTIONS (7)
  - COVID-19 [Unknown]
  - Pneumonia [Unknown]
  - Alopecia [Unknown]
  - Nightmare [Unknown]
  - Dry skin [Unknown]
  - Balance disorder [Unknown]
  - Pain [Unknown]
